FAERS Safety Report 16827221 (Version 1)
Quarter: 2019Q4

REPORT INFORMATION
  Report Type: Spontaneous
  Country: US (occurrence: US)
  Receive Date: 20190918
  Receipt Date: 20190918
  Transmission Date: 20200122
  Serious: Yes (Life-Threatening, Hospitalization)
  Sender: FDA-Public Use
  Company Number: None

PATIENT
  Age: 26 Year
  Sex: Female
  Weight: 63.5 kg

DRUGS (3)
  1. TALTZ [Suspect]
     Active Substance: IXEKIZUMAB
     Indication: PSORIASIS
     Route: 058
     Dates: start: 20190625, end: 20190906
  2. TALTZ [Suspect]
     Active Substance: IXEKIZUMAB
     Indication: PSORIATIC ARTHROPATHY
     Route: 058
     Dates: start: 20190625, end: 20190906
  3. TALTZ [Suspect]
     Active Substance: IXEKIZUMAB
     Dates: start: 20190625, end: 20190906

REACTIONS (10)
  - Oropharyngeal pain [None]
  - Hyperhidrosis [None]
  - Musculoskeletal stiffness [None]
  - Hypoaesthesia [None]
  - Pyrexia [None]
  - Headache [None]
  - Back pain [None]
  - Myalgia [None]
  - Nausea [None]
  - Lymphadenopathy [None]

NARRATIVE: CASE EVENT DATE: 20190906
